FAERS Safety Report 5615210-5 (Version None)
Quarter: 2008Q1

REPORT INFORMATION
  Report Type: 
  Country: None (occurrence: None)
  Receive Date: 20080205
  Receipt Date: 20080205
  Transmission Date: 20080703
  Serious: Yes (Disabling)
  Sender: FDA-Public Use
  Company Number: None

PATIENT
  Age: 74 Year
  Sex: Female
  Weight: 45.48 kg

DRUGS (2)
  1. PROCRIT [Suspect]
     Indication: ANAEMIA MACROCYTIC
     Dosage: 40,000 U  ONCE WEEKLY  SQ
     Route: 058
     Dates: start: 20041025, end: 20080109
  2. PROCRIT [Suspect]
     Dosage: 20,000 U  ONCE WEEKLY  SQ
     Route: 058

REACTIONS (2)
  - HAEMOGLOBIN INCREASED [None]
  - THERAPEUTIC RESPONSE UNEXPECTED [None]
